FAERS Safety Report 8201374-6 (Version None)
Quarter: 2012Q1

REPORT INFORMATION
  Report Type: 
  Country: None (occurrence: None)
  Receive Date: 20120312
  Receipt Date: 20120224
  Transmission Date: 20120608
  Serious: No
  Sender: FDA-Public Use
  Company Number: US-B.I. PHARMACEUTICALS,INC./RIDGEFIELD-2011-BP-24936BP

PATIENT
  Age: 70 Year
  Sex: Female

DRUGS (5)
  1. ASPIRIN [Concomitant]
     Indication: ATRIAL FIBRILLATION
     Dosage: 81 MG
  2. PREVACID [Concomitant]
     Indication: GASTRIC DISORDER
  3. PRADAXA [Suspect]
     Indication: ATRIAL FIBRILLATION
     Dosage: 300 MG
     Route: 048
     Dates: start: 20110301, end: 20110601
  4. RYTHMOL [Concomitant]
     Indication: ATRIAL FIBRILLATION
     Route: 048
  5. PROPAFENONE HCL [Concomitant]
     Indication: ATRIAL FIBRILLATION

REACTIONS (2)
  - DYSPEPSIA [None]
  - URINE ODOUR ABNORMAL [None]
